FAERS Safety Report 9184027 (Version 1)
Quarter: 2012Q4

REPORT INFORMATION
  Report Type: 
  Country: GB (occurrence: GB)
  Receive Date: 20121031
  Receipt Date: 20121031
  Transmission Date: 20130627
  Serious: Yes (Hospitalization, Other)
  Sender: FDA-Public Use
  Company Number: GB-009507513-1210GBR013036

PATIENT
  Age: 45 Year
  Sex: Male

DRUGS (3)
  1. MIRTAZAPINE [Suspect]
     Dosage: 15 mg, UNK
  2. CITALOPRAM HYDROCHLORIDE [Suspect]
     Dosage: 10 mg, UNK
  3. AMITRIPTYLINE HYDROCHLORIDE [Suspect]
     Dosage: 10 mg, UNK

REACTIONS (1)
  - Convulsion [Unknown]
